FAERS Safety Report 4449523-X (Version None)
Quarter: 2004Q3

REPORT INFORMATION
  Report Type: 
  Country: None (occurrence: None)
  Receive Date: 20040913
  Receipt Date: 20040913
  Transmission Date: 20050211
  Serious: Yes (Other)
  Sender: FDA-Public Use
  Company Number: None

PATIENT
  Age: 36 Year
  Sex: Female
  Weight: 95.2554 kg

DRUGS (2)
  1. LUPRON [Suspect]
     Indication: ADENOMYOSIS
     Dosage: 3.75  BUTTOCK INJECT  INTRAMUSCULAR
     Route: 030
     Dates: start: 20040610, end: 20040720
  2. LUPRON [Suspect]
     Indication: ENDOMETRIOSIS
     Dosage: 3.75  BUTTOCK INJECT  INTRAMUSCULAR
     Route: 030
     Dates: start: 20040610, end: 20040720

REACTIONS (10)
  - ARTHRALGIA [None]
  - CHEST PAIN [None]
  - CONTUSION [None]
  - HEADACHE [None]
  - JOINT SWELLING [None]
  - KERATOCONJUNCTIVITIS SICCA [None]
  - MIGRAINE [None]
  - MOOD ALTERED [None]
  - MYALGIA [None]
  - NAUSEA [None]
